FAERS Safety Report 18770799 (Version 2)
Quarter: 2021Q1

REPORT INFORMATION
  Report Type: Report from Study
  Country: CA (occurrence: CA)
  Receive Date: 20210121
  Receipt Date: 20210227
  Transmission Date: 20210419
  Serious: Yes (Hospitalization, Other)
  Sender: FDA-Public Use
  Company Number: CA-TAKEDA-2020TUS013282

PATIENT
  Age: 56 Year
  Sex: Male

DRUGS (6)
  1. SELINEXOR [Concomitant]
     Active Substance: SELINEXOR
     Dosage: 40 MILLIGRAM, 1/WEEK
     Route: 065
  2. DEXAMETHASONE. [Concomitant]
     Active Substance: DEXAMETHASONE
     Dosage: 40 MILLIGRAM
     Route: 065
     Dates: start: 20201223
  3. EPREX [Concomitant]
     Active Substance: ERYTHROPOIETIN
     Dosage: UNK UNK, MONTHLY
     Route: 065
  4. DEXAMETHASONE. [Concomitant]
     Active Substance: DEXAMETHASONE
     Dosage: UNK
     Route: 065
     Dates: start: 202003
  5. SELINEXOR [Concomitant]
     Active Substance: SELINEXOR
     Dosage: 20 MILLIGRAM, 1/WEEK
     Route: 065
     Dates: start: 20201021
  6. IXAZOMIB [Suspect]
     Active Substance: IXAZOMIB
     Indication: PLASMA CELL MYELOMA
     Dosage: 2.3 MILLIGRAM
     Route: 048
     Dates: start: 20200217

REACTIONS (10)
  - Off label use [Unknown]
  - White blood cell count decreased [Unknown]
  - Haemorrhage [Unknown]
  - Sepsis [Unknown]
  - Confusional state [Unknown]
  - Nervous system disorder [Unknown]
  - Metastases to meninges [Unknown]
  - Thrombocytopenia [Unknown]
  - Plasma cell myeloma [Unknown]
  - Cellulitis [Unknown]

NARRATIVE: CASE EVENT DATE: 20201231
